FAERS Safety Report 5275942-8 (Version None)
Quarter: 2007Q1

REPORT INFORMATION
  Report Type: 
  Country: None (occurrence: None)
  Receive Date: 20061219
  Receipt Date: 20060921
  Transmission Date: 20070707
  Serious: Yes (Disabling, Other)
  Sender: FDA-Public Use
  Company Number: US-JNJFOC-20061000259

PATIENT
  Age: 41 Year
  Sex: Female

DRUGS (1)
  1. ORTHO EVRA [Suspect]
     Indication: VAGINAL HAEMORRHAGE
     Dosage: TRANSDERMAL
     Route: 062
     Dates: start: 20040909

REACTIONS (1)
  - ISCHAEMIC CEREBRAL INFARCTION [None]
